FAERS Safety Report 4580316-9 (Version None)
Quarter: 2005Q1

REPORT INFORMATION
  Report Type: 
  Country: None (occurrence: None)
  Receive Date: 20050127
  Receipt Date: 20040907
  Transmission Date: 20050727
  Serious: No
  Sender: FDA-Public Use
  Company Number: USA040771580

PATIENT
  Age: 52 Year
  Sex: Male

DRUGS (6)
  1. STRATTERA [Suspect]
     Indication: CATAPLEXY
     Dosage: 10 MG/1 DAY
     Dates: start: 20040603, end: 20040622
  2. XYREM (OXYBATE SODIUM) [Concomitant]
  3. HYDROCHLOROTHIAZIDE [Concomitant]
  4. MODAFIL [Concomitant]
  5. FLOMAX [Concomitant]
  6. VIOXX [Concomitant]

REACTIONS (3)
  - DIPLOPIA [None]
  - PHOTOPHOBIA [None]
  - VISION BLURRED [None]
